FAERS Safety Report 24981908 (Version 1)
Quarter: 2025Q1

REPORT INFORMATION
  Report Type: Spontaneous
  Country: CA (occurrence: CA)
  Receive Date: 20250218
  Receipt Date: 20250218
  Transmission Date: 20250408
  Serious: Yes (Other)
  Sender: ROCHE
  Company Number: CA-002147023-NVSC2025CA023644

PATIENT
  Age: 72 Year
  Sex: Male

DRUGS (22)
  1. OMALIZUMAB [Suspect]
     Active Substance: OMALIZUMAB
     Indication: Asthma
     Dosage: 300 MG, BIW
     Route: 058
  2. OMALIZUMAB [Suspect]
     Active Substance: OMALIZUMAB
     Dosage: 300 MG, BIW
     Route: 058
  3. OMALIZUMAB [Suspect]
     Active Substance: OMALIZUMAB
     Dosage: 300 MG, BIW
     Route: 058
  4. OMALIZUMAB [Suspect]
     Active Substance: OMALIZUMAB
     Dosage: 300 MG, BIW
     Route: 058
  5. OMALIZUMAB [Suspect]
     Active Substance: OMALIZUMAB
     Dosage: 300 MG, BIW
     Route: 058
  6. OMALIZUMAB [Suspect]
     Active Substance: OMALIZUMAB
     Dosage: 300 MG, BIW
     Route: 058
  7. OMALIZUMAB [Suspect]
     Active Substance: OMALIZUMAB
     Route: 058
  8. AMLODIPINE [Concomitant]
     Active Substance: AMLODIPINE BESYLATE
     Indication: Hypertension
     Dosage: 1 DOSAGE FORM, QD
     Route: 050
  9. ATENOLOL [Concomitant]
     Active Substance: ATENOLOL
     Indication: Product used for unknown indication
     Dosage: 1 DOSAGE FORM, QD
     Route: 050
  10. ATORVASTATIN [Concomitant]
     Active Substance: ATORVASTATIN
     Indication: Hypertension
     Dosage: 1 DOSAGE FORM, QD
     Route: 050
  11. CEFUROXIME AXETIL [Concomitant]
     Active Substance: CEFUROXIME AXETIL
     Indication: Sinusitis
     Route: 065
  12. HYDROCHLOROTHIAZIDE [Concomitant]
     Active Substance: HYDROCHLOROTHIAZIDE
     Indication: Diuretic therapy
     Dosage: 1 DOSAGE FORM, QD
     Route: 050
  13. IRBESARTAN [Concomitant]
     Active Substance: IRBESARTAN
     Indication: Hypertension
     Dosage: 1 DOSAGE FORM, QD
     Route: 050
  14. MOMETASONE FUROATE [Concomitant]
     Active Substance: MOMETASONE FUROATE
     Indication: Product used for unknown indication
     Route: 065
  15. MONTELUKAST [Concomitant]
     Active Substance: MONTELUKAST
     Indication: Asthma
     Dosage: 1 DOSAGE FORM, QD
     Route: 050
  16. NASONEX [Concomitant]
     Active Substance: MOMETASONE FUROATE
     Indication: Nasal congestion
     Route: 065
  17. NASONEX [Concomitant]
     Active Substance: MOMETASONE FUROATE
     Route: 065
  18. SPIRONOLACTONE [Concomitant]
     Active Substance: SPIRONOLACTONE
     Indication: Product used for unknown indication
     Route: 065
  19. ZENHALE [Concomitant]
     Active Substance: FORMOTEROL FUMARATE\MOMETASONE FUROATE
     Indication: Asthma
     Route: 065
  20. ZENHALE [Concomitant]
     Active Substance: FORMOTEROL FUMARATE\MOMETASONE FUROATE
     Dosage: 4 DOSAGE FORM, QD (AEROSOL, METERED DOSE)
     Route: 050
  21. ALBUTEROL [Concomitant]
     Active Substance: ALBUTEROL
     Indication: Product used for unknown indication
     Dosage: 2 DOSAGE FORM, QMO
     Route: 065
  22. ALBUTEROL [Concomitant]
     Active Substance: ALBUTEROL
     Dosage: 2 DOSAGE FORM, QW
     Route: 065

REACTIONS (8)
  - Asthma [Not Recovered/Not Resolved]
  - Blood pressure increased [Not Recovered/Not Resolved]
  - Dyspnoea [Not Recovered/Not Resolved]
  - Middle insomnia [Not Recovered/Not Resolved]
  - Nervousness [Not Recovered/Not Resolved]
  - Pneumonia [Not Recovered/Not Resolved]
  - Weight decreased [Not Recovered/Not Resolved]
  - Wheezing [Not Recovered/Not Resolved]
